FAERS Safety Report 4756748-2 (Version None)
Quarter: 2005Q3

REPORT INFORMATION
  Report Type: 
  Country: None (occurrence: None)
  Receive Date: 20050830
  Receipt Date: 20050822
  Transmission Date: 20060218
  Serious: Yes (Hospitalization, Disabling)
  Sender: FDA-Public Use
  Company Number: PHFR2005GB02832

PATIENT
  Age: 45 Year
  Sex: Female
  Weight: 82 kg

DRUGS (3)
  1. ZOMETA [Suspect]
     Indication: MULTIPLE MYELOMA
     Dosage: UNK, UNK
     Route: 042
     Dates: start: 20031201, end: 20050601
  2. ANTIBIOTICS [Concomitant]
     Route: 048
  3. CITALOPRAM [Concomitant]
     Indication: ANXIETY
     Route: 048

REACTIONS (2)
  - ASEPTIC NECROSIS BONE [None]
  - TOOTH DISORDER [None]
